FAERS Safety Report 24747693 (Version 1)
Quarter: 2024Q4

REPORT INFORMATION
  Report Type: Spontaneous
  Country: US (occurrence: US)
  Receive Date: 20241218
  Receipt Date: 20241218
  Transmission Date: 20250114
  Serious: No
  Sender: REVANCE THERAPEUTICS
  Company Number: US-REVANCE THERAPEUTICS INC.-US-REV-2024-000559

PATIENT

DRUGS (1)
  1. DAXIBOTULINUMTOXIN A-LANM [Suspect]
     Active Substance: DAXIBOTULINUMTOXIN A-LANM
     Indication: Skin wrinkling
     Dosage: TOTAL 100 UNITS: FRONTALIS (30 UNITS), LATERAL CANTHAL (40 UNITS), UNKNOWN (30 UNITS)
     Route: 065
     Dates: start: 20240927

REACTIONS (7)
  - Anxiety [Unknown]
  - Nervousness [Recovered/Resolved]
  - Tachycardia [Unknown]
  - Dizziness [Recovered/Resolved]
  - Panic attack [Recovered/Resolved]
  - Dry mouth [Unknown]
  - Off label use [Unknown]

NARRATIVE: CASE EVENT DATE: 20240927
